FAERS Safety Report 17822017 (Version 1)
Quarter: 2020Q2

REPORT INFORMATION
  Report Type: Report from Study
  Country: CA (occurrence: CA)
  Receive Date: 20200526
  Receipt Date: 20200526
  Transmission Date: 20200714
  Serious: No
  Sender: FDA-Public Use
  Company Number: CA-TOLMAR, INC.-19CA001280

PATIENT
  Age: 81 Year
  Sex: Male

DRUGS (1)
  1. ELIGARD [Suspect]
     Active Substance: LEUPROLIDE ACETATE
     Indication: PROSTATE CANCER
     Dosage: 45 MG Q 6 MONTHS
     Route: 065
     Dates: start: 20190612

REACTIONS (3)
  - Balance disorder [Recovered/Resolved]
  - Speech disorder [Recovered/Resolved]
  - Vision blurred [Recovered/Resolved]

NARRATIVE: CASE EVENT DATE: 20190616
